FAERS Safety Report 11731757 (Version 1)
Quarter: 2015Q4

REPORT INFORMATION
  Report Type: Spontaneous
  Country: US (occurrence: US)
  Receive Date: 20151112
  Receipt Date: 20151112
  Transmission Date: 20160304
  Serious: Yes (Disabling, Other)
  Sender: FDA-Public Use
  Company Number: US-AMGEN-USASP2015119548

PATIENT
  Age: 67 Year
  Sex: Female

DRUGS (2)
  1. ENBREL [Suspect]
     Active Substance: ETANERCEPT
     Dosage: UNK
     Route: 065
     Dates: start: 2015
  2. ENBREL [Suspect]
     Active Substance: ETANERCEPT
     Indication: RHEUMATOID ARTHRITIS
     Dosage: UNK
     Route: 065
     Dates: end: 2012

REACTIONS (6)
  - Disease complication [Unknown]
  - Myocardial infarction [Unknown]
  - Nervousness [Unknown]
  - Cerebrovascular accident [Unknown]
  - Arthralgia [Unknown]
  - Hepatitis C [Unknown]

NARRATIVE: CASE EVENT DATE: 2012
